FAERS Safety Report 5729440-5 (Version None)
Quarter: 2008Q2

REPORT INFORMATION
  Report Type: 
  Country: None (occurrence: None)
  Receive Date: 20080506
  Receipt Date: 20080117
  Transmission Date: 20081010
  Serious: Yes (Other)
  Sender: FDA-Public Use
  Company Number: TR-ELI_LILLY_AND_COMPANY-TR200804006746

PATIENT

DRUGS (2)
  1. HUMULIN N [Suspect]
     Indication: GESTATIONAL DIABETES
     Dosage: 4 U, DAILY (1/D)
     Route: 064
     Dates: start: 20070701, end: 20080108
  2. HUMULIN R [Suspect]
     Indication: GESTATIONAL DIABETES
     Dosage: 30 U, DAILY (1/D)
     Route: 064
     Dates: start: 20070701, end: 20080108

REACTIONS (2)
  - DRUG EXPOSURE DURING PREGNANCY [None]
  - FOETAL GROWTH RETARDATION [None]
